FAERS Safety Report 11528782 (Version 1)
Quarter: 2015Q3

REPORT INFORMATION
  Report Type: Spontaneous
  Country: US (occurrence: US)
  Receive Date: 20150921
  Receipt Date: 20150921
  Transmission Date: 20151125
  Serious: No
  Sender: FDA-Public Use
  Company Number: US-PFIZER INC-2015305630

PATIENT
  Age: 53 Year
  Sex: Female

DRUGS (1)
  1. INLYTA [Suspect]
     Active Substance: AXITINIB
     Indication: RENAL CANCER
     Dosage: 3 MG, 2X/DAY (3 TABLETS (3 MG TOTAL) TWICE A DAY )
     Route: 048

REACTIONS (2)
  - Fatigue [Unknown]
  - Oral pain [Unknown]
